FAERS Safety Report 19327847 (Version 1)
Quarter: 2021Q2

REPORT INFORMATION
  Report Type: Spontaneous
  Country: US (occurrence: US)
  Receive Date: 20210528
  Receipt Date: 20210528
  Transmission Date: 20210717
  Serious: No
  Sender: FDA-Public Use
  Company Number: US-MICRO LABS LIMITED-ML2021-00573

PATIENT
  Sex: Female

DRUGS (1)
  1. DORZOLAMIDE [Suspect]
     Active Substance: DORZOLAMIDE
     Indication: GLAUCOMA
     Dosage: 2 DROPS IN LEFT EYE EVERY 12 HOURS
     Route: 047

REACTIONS (2)
  - Product dose omission issue [Unknown]
  - Product container issue [Unknown]
